FAERS Safety Report 9301392 (Version 1)
Quarter: 2013Q2

REPORT INFORMATION
  Report Type: Spontaneous
  Country: US (occurrence: None)
  Receive Date: 20130520
  Receipt Date: 20130520
  Transmission Date: 20140414
  Serious: Yes (Hospitalization)
  Sender: FDA-Public Use
  Company Number: None

PATIENT
  Age: 45 Year
  Sex: Male
  Weight: 86 kg

DRUGS (5)
  1. CYCLOPHOSPHAMIDE [Suspect]
     Dosage: TOTAL CASE 890 MG
  2. DOXORUBICIN HYDROCHLORIDE [Suspect]
     Dosage: TOTAL DOSE 74 MG
  3. ETOPOSIDE (VP-16) [Suspect]
     Dosage: TOTAL DOSE 372 MG
  4. METHOTREXATE [Suspect]
     Dosage: TOTAL DOSE 12 MG
  5. PREDNISONE [Suspect]
     Dosage: TOTAL DOSE 1100 MG

REACTIONS (3)
  - Anaemia [None]
  - Hypotension [None]
  - Haemorrhage [None]
